FAERS Safety Report 5817709-5 (Version None)
Quarter: 2008Q3

REPORT INFORMATION
  Report Type: 
  Country: None (occurrence: None)
  Receive Date: 20080722
  Receipt Date: 20080708
  Transmission Date: 20090109
  Serious: No
  Sender: FDA-Public Use
  Company Number: PHHY2008NL12672

PATIENT
  Sex: Male

DRUGS (11)
  1. METHYLPHENIDATE HCL [Suspect]
     Indication: DEMENTIA
     Dosage: 10 MG, BID
     Route: 048
     Dates: start: 20080101, end: 20080201
  2. METHYLPHENIDATE HCL [Suspect]
     Indication: DEPRESSION
     Dosage: 30 MG/DAY
     Route: 048
  3. METHYLPHENIDATE HCL [Suspect]
     Indication: APATHY
  4. LITHIUM CARBONATE [Concomitant]
     Indication: APATHY
     Dosage: 400 MG, QD,
     Route: 048
     Dates: start: 20071113
  5. ACETYLSALICYLIC ACID SRT [Concomitant]
     Dosage: 30 MG
     Route: 048
     Dates: start: 20071113
  6. ASCAL [Concomitant]
     Indication: CEREBROVASCULAR INSUFFICIENCY
     Dosage: 30 MG
     Route: 048
     Dates: start: 20071113
  7. FOSINOPRIL SODIUM [Concomitant]
     Indication: HYPERTENSION
     Dosage: 10 MG
     Route: 048
     Dates: start: 20071113
  8. MIRTAZAPINE [Concomitant]
     Indication: AFFECTIVE DISORDER
     Dosage: 30 MG
     Route: 048
     Dates: start: 20071113
  9. PANTOPRAZOLE SODIUM [Concomitant]
     Dosage: 40 MG
     Route: 048
     Dates: start: 20071113
  10. OXCARBAZEPINE [Concomitant]
     Dosage: 900 MG/DAY
     Route: 048
     Dates: start: 20071204
  11. TEMAZEPAM [Concomitant]
     Dosage: 10 MG
     Route: 048
     Dates: start: 20071130

REACTIONS (6)
  - DYSAESTHESIA [None]
  - EOSINOPHIL COUNT INCREASED [None]
  - HYPOAESTHESIA [None]
  - PAIN [None]
  - PRURITUS [None]
  - SKIN DISCOLOURATION [None]
